FAERS Safety Report 4986924-5 (Version None)
Quarter: 2006Q2

REPORT INFORMATION
  Report Type: 
  Country: None (occurrence: None)
  Receive Date: 20060501
  Receipt Date: 20060421
  Transmission Date: 20061013
  Serious: Yes (Other)
  Sender: FDA-Public Use
  Company Number: PHRM2006FR01407

PATIENT
  Age: 59 Year
  Sex: Male
  Weight: 80 kg

DRUGS (2)
  1. TEGRETOL [Suspect]
     Indication: TRIGEMINAL NEURALGIA
     Dosage: 400 MG, BID
     Route: 048
     Dates: start: 20050101
  2. ZOLOFT [Concomitant]

REACTIONS (2)
  - ATRIAL TACHYCARDIA [None]
  - PACEMAKER GENERATED RHYTHM [None]
